FAERS Safety Report 6027775-2 (Version None)
Quarter: 2009Q1

REPORT INFORMATION
  Report Type: 
  Country: None (occurrence: None)
  Receive Date: 20090105
  Receipt Date: 20081226
  Transmission Date: 20090719
  Serious: Yes (Hospitalization)
  Sender: FDA-Public Use
  Company Number: PHHO2007MX15715

PATIENT
  Sex: Female

DRUGS (6)
  1. DIOVAN HCT [Suspect]
     Indication: HYPERTENSION
     Dosage: 160/12.5MG DAILY
     Route: 048
     Dates: start: 20070101
  2. PEMIX [Concomitant]
  3. COZAAR [Concomitant]
     Dosage: 50 MG AND 1 TABLET EACH DAY
  4. PLAVIX [Concomitant]
     Dosage: 1 TABLET EACH DAY
  5. LEVOTHYROXINE [Concomitant]
     Dosage: 1 TABLET EACH 24 HOURS
  6. GLUCOBAY [Concomitant]
     Dosage: 1 TABLET EACH DAY

REACTIONS (6)
  - EMBOLISM [None]
  - FACIAL PALSY [None]
  - MONOPARESIS [None]
  - REHABILITATION THERAPY [None]
  - SPEECH DISORDER [None]
  - VASOSPASM [None]
